FAERS Safety Report 13011739 (Version 2)
Quarter: 2016Q4

REPORT INFORMATION
  Report Type: Report from Study
  Country: None (occurrence: CA)
  Receive Date: 20161209
  Receipt Date: 20161216
  Transmission Date: 20170207
  Serious: Yes (Hospitalization, Other)
  Sender: FDA-Public Use
  Company Number: CA-ABBVIE-06P-028-0352718-00

PATIENT
  Age: 76 Year
  Sex: Female
  Weight: 63.56 kg

DRUGS (8)
  1. PREDNISONE. [Concomitant]
     Active Substance: PREDNISONE
     Indication: RHEUMATOID ARTHRITIS
     Dosage: 5MG DAILY
     Route: 048
  2. HUMIRA [Suspect]
     Active Substance: ADALIMUMAB
     Route: 058
  3. ANAPROX [Concomitant]
     Active Substance: NAPROXEN SODIUM
     Indication: RHEUMATOID ARTHRITIS
     Route: 048
     Dates: start: 2005
  4. HUMIRA [Suspect]
     Active Substance: ADALIMUMAB
     Indication: RHEUMATOID ARTHRITIS
     Route: 058
     Dates: start: 20060811, end: 201102
  5. LOSEC [Concomitant]
     Active Substance: OMEPRAZOLE
     Indication: PROPHYLAXIS
     Route: 048
     Dates: start: 2003
  6. ANAPROX [Concomitant]
     Active Substance: NAPROXEN SODIUM
     Indication: INFLAMMATION
  7. MTX [Concomitant]
     Active Substance: METHOTREXATE SODIUM
     Indication: RHEUMATOID ARTHRITIS
     Route: 048
     Dates: start: 1995
  8. AVAPRO [Concomitant]
     Active Substance: IRBESARTAN
     Indication: HYPERTENSION
     Route: 048
     Dates: start: 2003

REACTIONS (4)
  - Back pain [Not Recovered/Not Resolved]
  - Abscess [Recovered/Resolved]
  - Spinal fusion surgery [Recovering/Resolving]
  - Abscess [Recovered/Resolved]

NARRATIVE: CASE EVENT DATE: 20061201
